FAERS Safety Report 6414235-X (Version None)
Quarter: 2009Q4

REPORT INFORMATION
  Report Type: 
  Country: None (occurrence: None)
  Receive Date: 20091026
  Receipt Date: 20091014
  Transmission Date: 20100525
  Serious: Yes (Hospitalization)
  Sender: FDA-Public Use
  Company Number: JP-SANOFI-SYNTHELABO-A01200909297

PATIENT
  Sex: Female
  Weight: 25 kg

DRUGS (6)
  1. DIAPP [Concomitant]
     Indication: FEBRILE CONVULSION
     Dosage: UNK
     Route: 054
     Dates: start: 20090829, end: 20090830
  2. MUCODYNE [Concomitant]
     Indication: PYREXIA
     Dosage: UNK
     Route: 065
     Dates: start: 20090826, end: 20090830
  3. TOMIRON [Concomitant]
     Indication: PYREXIA
     Dosage: UNK
     Route: 048
     Dates: start: 20090826, end: 20090829
  4. ZESULAN [Concomitant]
     Indication: PYREXIA
     Dosage: UNK
     Route: 048
     Dates: start: 20090826, end: 20090830
  5. MYSLEE [Suspect]
     Indication: DRUG PRESCRIBING ERROR
     Route: 048
     Dates: start: 20090829, end: 20090829
  6. MYSLEE [Suspect]
     Route: 048
     Dates: start: 20090830, end: 20090830

REACTIONS (8)
  - ABNORMAL BEHAVIOUR [None]
  - ACCIDENTAL OVERDOSE [None]
  - DELIRIUM [None]
  - DRUG DISPENSING ERROR [None]
  - HALLUCINATION, VISUAL [None]
  - LOGORRHOEA [None]
  - RESTLESSNESS [None]
  - VISUAL IMPAIRMENT [None]
